FAERS Safety Report 10189486 (Version 5)
Quarter: 2015Q1

REPORT INFORMATION
  Report Type: Spontaneous
  Country: AU (occurrence: AU)
  Receive Date: 20140522
  Receipt Date: 20150313
  Transmission Date: 20150720
  Serious: Yes (Life-Threatening, Hospitalization)
  Sender: FDA-Public Use
  Company Number: AU-PFIZER INC-2014137909

PATIENT
  Age: 70 Year
  Sex: Female
  Weight: 78.2 kg

DRUGS (12)
  1. ATORVASTATIN [Concomitant]
     Active Substance: ATORVASTATIN
     Dosage: 80 MG, AT NIGHT
  2. ASPIRIN. [Concomitant]
     Active Substance: ASPIRIN
     Dosage: 100 MG, 3RD DAILY
  3. NOTEN [Concomitant]
     Active Substance: ATENOLOL
     Dosage: 5 MG, 1X/DAY
  4. GENOTROPIN [Suspect]
     Active Substance: SOMATROPIN
     Indication: GROWTH HORMONE DEFICIENCY
     Dosage: 0.8 MG, AT NIGHT
     Route: 058
     Dates: start: 1993, end: 201405
  5. NICORANDIL [Concomitant]
     Active Substance: NICORANDIL
     Dosage: 20 MG, 2X/DAY
  6. PREDNISONE. [Concomitant]
     Active Substance: PREDNISONE
     Indication: HYPOPITUITARISM
     Dosage: 2 MG, 2X/DAY
     Dates: start: 1972
  7. THYROXINE [Concomitant]
     Active Substance: LEVOTHYROXINE
     Indication: HYPOPITUITARISM
     Dosage: 100 MCG/DAILY ON 6 DAYS/WEEK, 150 MCG/DAILY ON 1 DAY/WEEK
     Dates: start: 1972
  8. DESMOPRESSIN [Concomitant]
     Active Substance: DESMOPRESSIN
     Dosage: UNK
     Dates: end: 201401
  9. PLAVIX [Concomitant]
     Active Substance: CLOPIDOGREL BISULFATE
     Dosage: 60 MG, 1X/DAY
  10. GENOTROPIN [Suspect]
     Active Substance: SOMATROPIN
     Indication: HYPOPITUITARISM
  11. PRAZOSIN [Concomitant]
     Active Substance: PRAZOSIN
     Dosage: 0.5 MG, 2X/DAY
  12. GLYCERYL TRINITRATE [Concomitant]
     Active Substance: NITROGLYCERIN
     Dosage: UNK
     Route: 060

REACTIONS (1)
  - Diffuse large B-cell lymphoma [Not Recovered/Not Resolved]

NARRATIVE: CASE EVENT DATE: 201404
